FAERS Safety Report 12160973 (Version 2)
Quarter: 2016Q2

REPORT INFORMATION
  Report Type: Spontaneous
  Country: US (occurrence: US)
  Receive Date: 20160308
  Receipt Date: 20160503
  Transmission Date: 20160815
  Serious: Yes (Other)
  Sender: FDA-Public Use
  Company Number: US-PFIZER INC-2016129750

PATIENT
  Age: 84 Year
  Sex: Female

DRUGS (7)
  1. LINZESS [Interacting]
     Active Substance: LINACLOTIDE
     Indication: CONSTIPATION
     Dosage: 145 UG, 1X/DAY
     Route: 048
     Dates: end: 2016
  2. CLINDAMYCIN HCL [Suspect]
     Active Substance: CLINDAMYCIN HYDROCHLORIDE
     Dosage: 600 MG, 3X/DAY
     Route: 048
     Dates: end: 20160218
  3. LINZESS [Interacting]
     Active Substance: LINACLOTIDE
     Dosage: 290 UG, 1X/DAY
     Route: 048
     Dates: start: 201602
  4. PANTOPRAZOLE [Concomitant]
     Active Substance: PANTOPRAZOLE SODIUM
     Dosage: UNK
     Route: 048
  5. JANUVIA [Concomitant]
     Active Substance: SITAGLIPTIN PHOSPHATE
     Indication: DIABETES MELLITUS
     Dosage: 50 MG, 1X/DAY
     Route: 048
  6. VERAPAMIL [Concomitant]
     Active Substance: VERAPAMIL HYDROCHLORIDE
     Indication: SINUS NODE DYSFUNCTION
     Dosage: UNK
  7. LISINOPRIL. [Concomitant]
     Active Substance: LISINOPRIL
     Dosage: UNK
     Route: 048

REACTIONS (12)
  - Abdominal discomfort [Not Recovered/Not Resolved]
  - Urethral haemorrhage [Not Recovered/Not Resolved]
  - Fatigue [Not Recovered/Not Resolved]
  - Drug ineffective for unapproved indication [Not Recovered/Not Resolved]
  - Hypoacusis [Not Recovered/Not Resolved]
  - Balance disorder [Not Recovered/Not Resolved]
  - Abdominal pain [Not Recovered/Not Resolved]
  - Dizziness [Not Recovered/Not Resolved]
  - Constipation [Not Recovered/Not Resolved]
  - Drug interaction [Not Recovered/Not Resolved]
  - Rectal haemorrhage [Not Recovered/Not Resolved]
  - Cystitis [Not Recovered/Not Resolved]

NARRATIVE: CASE EVENT DATE: 201602
